FAERS Safety Report 23872020 (Version 2)
Quarter: 2024Q2

REPORT INFORMATION
  Report Type: Spontaneous
  Country: JP (occurrence: JP)
  Receive Date: 20240520
  Receipt Date: 20240624
  Transmission Date: 20240716
  Serious: Yes (Death, Hospitalization, Other)
  Sender: FDA-Public Use
  Company Number: JP-TAKEDA-2024TJP007115

PATIENT
  Age: 47 Year
  Sex: Female

DRUGS (1)
  1. ALUNBRIG [Suspect]
     Active Substance: BRIGATINIB
     Indication: Non-small cell lung cancer
     Dosage: 180 MILLIGRAM, QD
     Route: 048
     Dates: start: 20240301, end: 20240601

REACTIONS (3)
  - Non-small cell lung cancer [Fatal]
  - Pleural effusion [Recovered/Resolved]
  - Oxygen saturation decreased [Not Recovered/Not Resolved]
